FAERS Safety Report 10101664 (Version 1)
Quarter: 2014Q2

REPORT INFORMATION
  Report Type: Spontaneous
  Country: CH (occurrence: CH)
  Receive Date: 20140424
  Receipt Date: 20140424
  Transmission Date: 20141212
  Serious: Yes (Hospitalization)
  Sender: FDA-Public Use
  Company Number: CH-EISAI INC-E2007-01643-SPO-CH

PATIENT
  Age: 22 Year
  Sex: Male

DRUGS (9)
  1. FYCOMPA (PERAMPANEL) [Suspect]
     Indication: PARTIAL SEIZURES
     Dosage: 4 MG/DAY
     Route: 048
     Dates: start: 20130429, end: 20130511
  2. FYCOMPA (PERAMPANEL) [Interacting]
     Indication: OFF LABEL USE
     Dosage: 14 MG/DAY
     Route: 048
     Dates: start: 20130512
  3. PHENYTOIN [Interacting]
     Indication: PARTIAL SEIZURES
     Dosage: 250 MG/DAY
     Route: 048
     Dates: end: 20130512
  4. PHENYTOIN [Interacting]
     Dosage: 350 MG/DAY
     Route: 048
     Dates: start: 2013
  5. TRILEPTAL (OXCARBAZEPINE) [Interacting]
     Indication: PARTIAL SEIZURES
     Dosage: 1800 MG/DAY
     Route: 048
     Dates: end: 20130428
  6. TRILEPTAL (OXCARBAZEPINE) [Interacting]
     Dosage: 1200 MG/DAY
     Route: 048
     Dates: start: 2013, end: 2013
  7. TRILEPTAL (OXCARBAZEPINE) [Interacting]
     Dosage: 1800 MG/DAY
     Route: 048
     Dates: start: 2013
  8. TROBALT [Suspect]
     Indication: PARTIAL SEIZURES
     Dosage: 1200 MG/DAY
     Route: 048
     Dates: end: 201305
  9. RIVOTRIL (CLONAZEPAM) [Concomitant]
     Indication: PARTIAL SEIZURES
     Dosage: 4 MG/DAY
     Route: 048
     Dates: end: 201305

REACTIONS (4)
  - Status epilepticus [Recovered/Resolved]
  - Drug interaction [Recovered/Resolved]
  - Drug level decreased [Recovered/Resolved]
  - Anticonvulsant drug level below therapeutic [Recovering/Resolving]
